FAERS Safety Report 18975048 (Version 3)
Quarter: 2021Q2

REPORT INFORMATION
  Report Type: Spontaneous
  Country: DO (occurrence: DO)
  Receive Date: 20210305
  Receipt Date: 20210409
  Transmission Date: 20210717
  Serious: Yes (Other)
  Sender: FDA-Public Use
  Company Number: DO-JNJFOC-20210129031

PATIENT
  Age: 36 Year
  Sex: Female

DRUGS (1)
  1. SPRAVATO [Suspect]
     Active Substance: ESKETAMINE
     Indication: PRODUCT USED FOR UNKNOWN INDICATION

REACTIONS (5)
  - Hypertensive crisis [Unknown]
  - Feeling cold [Unknown]
  - Vomiting [Unknown]
  - Dissociation [Unknown]
  - Headache [Unknown]

NARRATIVE: CASE EVENT DATE: 20210118
